FAERS Safety Report 9015676 (Version 1)
Quarter: 2013Q1

REPORT INFORMATION
  Report Type: Spontaneous
  Country: DE (occurrence: None)
  Receive Date: 20130103
  Receipt Date: 20130103
  Transmission Date: 20140127
  Serious: Yes (Congenital Anomaly, Other)
  Sender: FDA-Public Use
  Company Number: 2012-22807

PATIENT
  Sex: Male
  Weight: 1 kg

DRUGS (3)
  1. MORPHINE SULFATE (UNKNOWN) (MORPHINE SULFATE) UNK, UNKUNK [Suspect]
     Indication: ARTHRITIS
     Route: 064
     Dates: start: 20091225, end: 20100729
  2. ADALAT (NIFEDIPINE) [Concomitant]
  3. METHYLDOPA (METHYLDOPA) [Concomitant]

REACTIONS (12)
  - Patent ductus arteriosus [None]
  - Atrial septal defect [None]
  - Ventricular septal defect [None]
  - Right aortic arch [None]
  - Neonatal respiratory distress syndrome [None]
  - Apnoea neonatal [None]
  - Bradycardia neonatal [None]
  - Cryptorchism [None]
  - Caesarean section [None]
  - Premature baby [None]
  - Maternal drugs affecting foetus [None]
  - Exposure during breast feeding [None]
